FAERS Safety Report 21080222 (Version 1)
Quarter: 2022Q3

REPORT INFORMATION
  Report Type: Spontaneous
  Country: US (occurrence: US)
  Receive Date: 20220714
  Receipt Date: 20220714
  Transmission Date: 20221027
  Serious: Yes (Death, Hospitalization, Other)
  Sender: FDA-Public Use
  Company Number: US-ABBVIE-22K-163-4467186-00

PATIENT
  Age: 75 Year
  Sex: Male
  Weight: 65.830 kg

DRUGS (4)
  1. HUMIRA [Suspect]
     Active Substance: ADALIMUMAB
     Indication: Psoriatic arthropathy
     Route: 058
     Dates: start: 2012, end: 20220429
  2. MODERNA COVID-19 VACCINE [Concomitant]
     Active Substance: ELASOMERAN
     Indication: COVID-19 immunisation
     Dosage: MODERNA
     Route: 030
     Dates: start: 2021, end: 2021
  3. MODERNA COVID-19 VACCINE [Concomitant]
     Active Substance: ELASOMERAN
     Dosage: MODERNA
     Route: 030
     Dates: start: 2021, end: 2021
  4. MODERNA COVID-19 VACCINE [Concomitant]
     Active Substance: ELASOMERAN
     Dosage: MODERNA
     Route: 030
     Dates: start: 2022, end: 2022

REACTIONS (9)
  - Respiratory failure [Fatal]
  - Pneumonia [Fatal]
  - Cardiac failure congestive [Recovered/Resolved]
  - Cardiovascular disorder [Recovered/Resolved]
  - Aortic aneurysm [Recovered/Resolved]
  - Pain in extremity [Recovered/Resolved]
  - Infection [Recovered/Resolved]
  - Guillain-Barre syndrome [Recovered/Resolved]
  - Immunodeficiency [Unknown]

NARRATIVE: CASE EVENT DATE: 20220509
